FAERS Safety Report 23609470 (Version 2)
Quarter: 2024Q1

REPORT INFORMATION
  Report Type: Other
  Country: US (occurrence: None)
  Receive Date: 20240308
  Receipt Date: 20240322
  Transmission Date: 20240410
  Serious: Yes (Hospitalization, Other)
  Sender: FDA-Public Use
  Company Number: US-ROCHE-3520045

PATIENT
  Age: 57 Year
  Sex: Female

DRUGS (1)
  1. RITUXAN [Suspect]
     Active Substance: RITUXIMAB
     Indication: Chronic lymphocytic leukaemia
     Route: 065

REACTIONS (9)
  - Tooth loss [Recovered/Resolved]
  - Weight decreased [Recovered/Resolved]
  - Ageusia [Recovered/Resolved]
  - Blood test abnormal [Unknown]
  - Intestinal perforation [Unknown]
  - Drug ineffective [Unknown]
  - Cold type haemolytic anaemia [Unknown]
  - Feeding disorder [Unknown]
  - Eating disorder [Unknown]

NARRATIVE: CASE EVENT DATE: 20170101
